FAERS Safety Report 4758584-X (Version None)
Quarter: 2005Q3

REPORT INFORMATION
  Report Type: 
  Country: None (occurrence: None)
  Receive Date: 20050901
  Receipt Date: 20050825
  Transmission Date: 20060218
  Serious: Yes (Life-Threatening, Hospitalization, Disabling)
  Sender: FDA-Public Use
  Company Number: US-JNJFOC-20050205790

PATIENT
  Sex: Male
  Weight: 136.08 kg

DRUGS (12)
  1. DURAGESIC-100 [Suspect]
     Route: 062
  2. DURAGESIC-100 [Suspect]
     Route: 062
  3. DURAGESIC-100 [Suspect]
     Route: 062
  4. DURAGESIC-100 [Suspect]
     Route: 062
  5. NEURONTIN [Concomitant]
     Indication: DRUG USE FOR UNKNOWN INDICATION
  6. PRANDIN [Concomitant]
     Indication: DRUG USE FOR UNKNOWN INDICATION
  7. ZYVOX [Concomitant]
     Indication: DRUG USE FOR UNKNOWN INDICATION
  8. POTASSIUM [Concomitant]
     Indication: DRUG USE FOR UNKNOWN INDICATION
  9. SYNTHROID [Concomitant]
     Indication: DRUG USE FOR UNKNOWN INDICATION
  10. LASIX [Concomitant]
     Indication: DRUG USE FOR UNKNOWN INDICATION
  11. PERCOCET [Concomitant]
  12. PERCOCET [Concomitant]
     Indication: DRUG USE FOR UNKNOWN INDICATION

REACTIONS (25)
  - CELLULITIS [None]
  - COR PULMONALE [None]
  - DEPRESSION [None]
  - DIARRHOEA [None]
  - DIZZINESS [None]
  - FALL [None]
  - GANGRENE [None]
  - GENERALISED OEDEMA [None]
  - GLOMERULONEPHRITIS [None]
  - HEAD INJURY [None]
  - INFLUENZA [None]
  - LEG AMPUTATION [None]
  - NAUSEA [None]
  - PALPITATIONS [None]
  - PHANTOM PAIN [None]
  - PLEURAL EFFUSION [None]
  - PNEUMONIA STAPHYLOCOCCAL [None]
  - PYREXIA [None]
  - RENAL FAILURE [None]
  - RENAL FAILURE ACUTE [None]
  - RESPIRATORY FAILURE [None]
  - RHABDOMYOLYSIS [None]
  - SEPTIC SHOCK [None]
  - SKIN ULCER [None]
  - VOMITING [None]
